FAERS Safety Report 15388327 (Version 2)
Quarter: 2018Q3

REPORT INFORMATION
  Report Type: Spontaneous
  Country: KR (occurrence: KR)
  Receive Date: 20180915
  Receipt Date: 20180928
  Transmission Date: 20181010
  Serious: Yes (Death, Hospitalization)
  Sender: FDA-Public Use
  Company Number: KR-AMGEN-KORSP2018128776

PATIENT
  Age: 64 Year
  Sex: Female
  Weight: 54 kg

DRUGS (27)
  1. KYPROLIS [Suspect]
     Active Substance: CARFILZOMIB
     Indication: PRODUCT USED FOR UNKNOWN INDICATION
     Dosage: UNK
     Route: 065
     Dates: start: 20180115
  2. SEPTRIN [Concomitant]
     Active Substance: SULFAMETHOXAZOLE\TRIMETHOPRIM
     Dosage: 400 MG, UNK
     Route: 048
     Dates: start: 20140617, end: 20180813
  3. LEXAPRO [Concomitant]
     Active Substance: ESCITALOPRAM OXALATE
     Dosage: 10 MG, UNK
     Route: 048
     Dates: start: 20180821, end: 20180821
  4. ZOLEDRONIC ACID [Suspect]
     Active Substance: ZOLEDRONIC ACID
     Indication: PLASMA CELL MYELOMA
     Dosage: UNK
     Route: 065
     Dates: start: 20140715, end: 20161227
  5. PLUNAZOLE [Concomitant]
     Dosage: 50 MG, UNK
     Route: 048
     Dates: start: 20140617, end: 20180905
  6. VIVIR [Concomitant]
     Dosage: 400 MG, UNK
     Route: 048
     Dates: start: 20170905, end: 20180905
  7. STILNOX [Concomitant]
     Active Substance: ZOLPIDEM TARTRATE
     Dosage: 6.25 MG, UNK
     Route: 048
     Dates: start: 20180813, end: 20180904
  8. ATIVAN [Concomitant]
     Active Substance: LORAZEPAM
     Dosage: 2 MG, UNK
     Route: 042
     Dates: start: 20180821, end: 20180821
  9. DEXAMETHASONE. [Concomitant]
     Active Substance: DEXAMETHASONE
     Dosage: UNK
     Dates: start: 20180115
  10. LIVERACT [Concomitant]
     Dosage: 5 G, UNK
     Route: 042
     Dates: start: 20180813, end: 20180823
  11. MEGESTROL ES [Concomitant]
     Dosage: 625 MG, UNK
     Route: 048
     Dates: start: 20180819, end: 20180904
  12. PENNEL [Concomitant]
     Dosage: 50 MG, UNK
     Route: 048
     Dates: start: 20180820, end: 20180904
  13. DENOSUMAB [Suspect]
     Active Substance: DENOSUMAB
     Indication: PLASMA CELL MYELOMA
     Dosage: 1.7 ML, UNK
     Route: 065
     Dates: start: 20140715, end: 20161227
  14. ASPIRIN PROTECT [Concomitant]
     Active Substance: ASPIRIN
     Dosage: 100 MG, UNK
     Route: 048
     Dates: start: 20160719, end: 20180905
  15. STILLEN [Concomitant]
     Dosage: 90 MG, UNK
     Route: 048
     Dates: start: 20161227, end: 20180905
  16. UNASYN [Concomitant]
     Active Substance: AMPICILLIN SODIUM\SULBACTAM SODIUM
     Dosage: 375 MG, UNK
     Route: 048
     Dates: start: 20170221, end: 20180905
  17. ALLOPURINOL. [Concomitant]
     Active Substance: ALLOPURINOL
     Dosage: 100 MG, UNK
     Route: 048
     Dates: start: 20180820, end: 20180904
  18. QUETAPIN [Concomitant]
     Dosage: 12.5 MG, UNK
     Route: 048
     Dates: start: 20180816, end: 20180904
  19. BUP?4 [Concomitant]
     Active Substance: PROPIVERINE
     Dosage: 10 MG, UNK
     Route: 048
     Dates: start: 20180822, end: 20180823
  20. MIRTAPIN [Concomitant]
     Dosage: 3.75 MG, UNK
     Route: 048
     Dates: start: 20180822, end: 20180904
  21. DENOSUMAB [Suspect]
     Active Substance: DENOSUMAB
     Dosage: 1.7 ML, UNK
     Route: 065
     Dates: start: 20170124, end: 20180731
  22. CALCIUM + VIT D [Concomitant]
     Active Substance: CALCIUM\VITAMIN D
     Dosage: UNK
     Route: 048
     Dates: start: 20140715, end: 20180905
  23. DEPAS [Concomitant]
     Active Substance: ETIZOLAM
     Dosage: 0.5 MG, UNK
     Route: 048
     Dates: start: 20180817, end: 20180817
  24. LEGALON [Concomitant]
     Active Substance: DIETARY SUPPLEMENT\HERBALS\MILK THISTLE
     Dosage: 140 MG, UNK
     Route: 048
     Dates: start: 20180818, end: 20180904
  25. LYRICA [Concomitant]
     Active Substance: PREGABALIN
     Dosage: 150 MG, UNK
     Route: 048
     Dates: start: 20170704, end: 20180905
  26. LENALIDOMIDE [Concomitant]
     Active Substance: LENALIDOMIDE
     Dosage: UNK
     Dates: start: 20180115
  27. NEUTROGIN [Concomitant]
     Active Substance: LENOGRASTIM
     Dosage: 250 MG, UNK
     Route: 042
     Dates: start: 20180814, end: 20180817

REACTIONS (3)
  - Protein urine present [Fatal]
  - Depression [Not Recovered/Not Resolved]
  - Asthenia [Not Recovered/Not Resolved]

NARRATIVE: CASE EVENT DATE: 20180813
